FAERS Safety Report 9106121 (Version 2)
Quarter: 2013Q2

REPORT INFORMATION
  Report Type: Spontaneous
  Country: US (occurrence: US)
  Receive Date: 20130220
  Receipt Date: 20130626
  Transmission Date: 20140414
  Serious: Yes (Other)
  Sender: FDA-Public Use
  Company Number: US-PFIZER INC-2013062662

PATIENT
  Age: 66 Year
  Sex: Male

DRUGS (3)
  1. AMLODIPINE BESILATE [Suspect]
     Dosage: UNK
  2. ENALAPRIL [Concomitant]
     Dosage: UNK
  3. ATENOLOL [Concomitant]
     Dosage: UNK

REACTIONS (1)
  - Lymphoproliferative disorder [Recovered/Resolved]
